FAERS Safety Report 5682498-4 (Version None)
Quarter: 2008Q1

REPORT INFORMATION
  Report Type: 
  Country: None (occurrence: None)
  Receive Date: 20080326
  Receipt Date: 20080326
  Transmission Date: 20080703
  Serious: Yes (Hospitalization)
  Sender: FDA-Public Use
  Company Number: None

PATIENT
  Sex: Female
  Weight: 67 kg

DRUGS (1)
  1. KEPPRA [Suspect]
     Indication: SUBDURAL HAEMATOMA
     Dosage: 500MG Q12 X 2D PO THEN 1000 MG Q12 X 2 D PO
     Route: 048
     Dates: start: 20080109, end: 20080113

REACTIONS (1)
  - WHITE BLOOD CELL COUNT DECREASED [None]
